FAERS Safety Report 8227509-7 (Version None)
Quarter: 2012Q1

REPORT INFORMATION
  Report Type: 
  Country: None (occurrence: None)
  Receive Date: 20120322
  Receipt Date: 20120316
  Transmission Date: 20120608
  Serious: Yes (Other)
  Sender: FDA-Public Use
  Company Number: FR-BAYER-2012-027524

PATIENT
  Age: 66 Year
  Sex: Female

DRUGS (1)
  1. NAPROXEN SODIUM [Suspect]
     Dosage: UNK UNK, TIW
     Route: 048
     Dates: start: 20111024, end: 20111030

REACTIONS (1)
  - COLITIS ISCHAEMIC [None]
